FAERS Safety Report 23810220 (Version 1)
Quarter: 2024Q2

REPORT INFORMATION
  Report Type: Spontaneous
  Country: HR (occurrence: HR)
  Receive Date: 20240502
  Receipt Date: 20240502
  Transmission Date: 20240716
  Serious: Yes (Hospitalization)
  Sender: FDA-Public Use
  Company Number: HR-FreseniusKabi-FK202406704

PATIENT
  Age: 67 Year
  Sex: Female
  Weight: 75 kg

DRUGS (1)
  1. CIPROFLOXACIN [Suspect]
     Active Substance: CIPROFLOXACIN
     Indication: Bladder cancer
     Dosage: DOSE: 2 X 200 MG
     Route: 042
     Dates: start: 20240227, end: 20240228

REACTIONS (2)
  - Peripheral swelling [Recovered/Resolved]
  - Erythema [Recovered/Resolved]

NARRATIVE: CASE EVENT DATE: 20240227
